FAERS Safety Report 9325742 (Version 2)
Quarter: 2013Q2

REPORT INFORMATION
  Report Type: Spontaneous
  Country: US (occurrence: US)
  Receive Date: 20130604
  Receipt Date: 20130618
  Transmission Date: 20140414
  Serious: No
  Sender: FDA-Public Use
  Company Number: US-009507513-1305USA017204

PATIENT
  Age: 26 Year
  Sex: Female
  Weight: 59.86 kg

DRUGS (1)
  1. NEXPLANON [Suspect]
     Indication: CONTRACEPTION
     Dosage: 68MG
     Route: 059
     Dates: start: 20130318

REACTIONS (3)
  - Implant site pain [Not Recovered/Not Resolved]
  - Pain [Recovered/Resolved]
  - Pruritus [Recovered/Resolved]
